FAERS Safety Report 16633651 (Version 3)
Quarter: 2021Q1

REPORT INFORMATION
  Report Type: Report from Study
  Country: US (occurrence: US)
  Receive Date: 20190725
  Receipt Date: 20210208
  Transmission Date: 20210419
  Serious: No
  Sender: FDA-Public Use
  Company Number: PHEH2019US030973

PATIENT
  Sex: Female
  Weight: 78.5 kg

DRUGS (1)
  1. COSENTYX [Suspect]
     Active Substance: SECUKINUMAB
     Indication: PSORIASIS
     Dosage: 300 MG, QW FOR 0,1,2,3,4 THEN QMO
     Route: 065
     Dates: start: 20190611

REACTIONS (3)
  - Arthritis [Unknown]
  - Product dose omission issue [Unknown]
  - Psoriasis [Unknown]
